FAERS Safety Report 5284453-5 (Version None)
Quarter: 2007Q1

REPORT INFORMATION
  Report Type: 
  Country: None (occurrence: None)
  Receive Date: 20061227
  Receipt Date: 20060926
  Transmission Date: 20070707
  Serious: Yes (Other)
  Sender: FDA-Public Use
  Company Number: 13522057

PATIENT
  Sex: Female

DRUGS (1)
  1. EMSAM [Suspect]
     Dates: start: 20060901

REACTIONS (1)
  - BLOOD PRESSURE INCREASED [None]
